FAERS Safety Report 24261741 (Version 3)
Quarter: 2024Q4

REPORT INFORMATION
  Report Type: Report from Study
  Country: CA (occurrence: CA)
  Receive Date: 20240829
  Receipt Date: 20241219
  Transmission Date: 20250115
  Serious: Yes (Other)
  Sender: JOHNSON AND JOHNSON
  Company Number: CA-JNJFOC-20231137048

PATIENT
  Age: 68 Year
  Sex: Female
  Weight: 110 kg

DRUGS (4)
  1. SIMPONI [Suspect]
     Active Substance: GOLIMUMAB
     Indication: Rheumatoid arthritis
     Route: 041
     Dates: start: 20221017
  2. SIMPONI [Suspect]
     Active Substance: GOLIMUMAB
     Dosage: FREQUENCY:1
     Route: 041
  3. SIMPONI [Suspect]
     Active Substance: GOLIMUMAB
     Dosage: FREQUENCY:1
     Route: 041
     Dates: start: 20231017
  4. SIMPONI [Suspect]
     Active Substance: GOLIMUMAB
     Dosage: FREQUENCY:1
     Route: 041
     Dates: start: 20231017

REACTIONS (7)
  - Rheumatoid arthritis [Not Recovered/Not Resolved]
  - Hypercalcaemia [Unknown]
  - Humerus fracture [Recovering/Resolving]
  - Fall [Recovering/Resolving]
  - Influenza like illness [Recovered/Resolved]
  - Tendon rupture [Unknown]
  - Oral candidiasis [Recovering/Resolving]

NARRATIVE: CASE EVENT DATE: 20240201
